FAERS Safety Report 17529627 (Version 2)
Quarter: 2020Q1

REPORT INFORMATION
  Report Type: Spontaneous
  Country: US (occurrence: US)
  Receive Date: 20200312
  Receipt Date: 20200313
  Transmission Date: 20200409
  Serious: No
  Sender: FDA-Public Use
  Company Number: US-009507513-2003USA003280

PATIENT
  Sex: Female

DRUGS (2)
  1. DULERA [Suspect]
     Active Substance: FORMOTEROL FUMARATE DIHYDRATE\MOMETASONE FUROATE
     Dosage: 2 PUFFS TWICE A DAY
  2. PROVENTIL [Suspect]
     Active Substance: ALBUTEROL

REACTIONS (6)
  - Product quality issue [Unknown]
  - Product dose omission [Unknown]
  - Blood pressure increased [Unknown]
  - No adverse event [Unknown]
  - Poor quality device used [Unknown]
  - Product use issue [Unknown]

NARRATIVE: CASE EVENT DATE: 202003
